FAERS Safety Report 5259998-4 (Version None)
Quarter: 2007Q1

REPORT INFORMATION
  Report Type: 
  Country: None (occurrence: None)
  Receive Date: 20070309
  Receipt Date: 20060125
  Transmission Date: 20070707
  Serious: Yes (Other)
  Sender: FDA-Public Use
  Company Number: US-GLAXOSMITHKLINE-A0590696A

PATIENT
  Age: 43 Year
  Sex: Male

DRUGS (1)
  1. NICORETTE (MINT) [Suspect]
     Dates: start: 20050101

REACTIONS (1)
  - DRUG ABUSER [None]
